FAERS Safety Report 7507000-3 (Version None)
Quarter: 2011Q2

REPORT INFORMATION
  Report Type: 
  Country: None (occurrence: None)
  Receive Date: 20110526
  Receipt Date: 20110511
  Transmission Date: 20111010
  Serious: No
  Sender: FDA-Public Use
  Company Number: US-B.I. PHARMACEUTICALS,INC./RIDGEFIELD-2011-BP-12844BP

PATIENT
  Age: 70 Year
  Sex: Male

DRUGS (9)
  1. PRADAXA [Suspect]
     Indication: ATRIAL FIBRILLATION
     Dosage: 300 MG
     Route: 048
     Dates: start: 20110401
  2. TEKTURNA [Concomitant]
     Indication: FLUID RETENTION
  3. FOLIC ACID [Concomitant]
     Indication: SUPPLEMENTATION THERAPY
  4. NEXIUM [Concomitant]
     Indication: GASTROOESOPHAGEAL REFLUX DISEASE
  5. SIMVASTATIN [Concomitant]
     Indication: BLOOD CHOLESTEROL INCREASED
  6. SPIRONOLACTONE [Concomitant]
     Indication: FLUID RETENTION
  7. AUTO INJECTION [Concomitant]
     Indication: DIABETES MELLITUS
  8. LEXAPRO [Concomitant]
  9. LASIX [Concomitant]
     Indication: FLUID RETENTION
     Dosage: 20 MG

REACTIONS (1)
  - BLOOD GLUCOSE INCREASED [None]
